FAERS Safety Report 4268652-7 (Version None)
Quarter: 2004Q1

REPORT INFORMATION
  Report Type: 
  Country: None (occurrence: None)
  Receive Date: 20040112
  Receipt Date: 20040107
  Transmission Date: 20041129
  Serious: Yes (Disabling)
  Sender: FDA-Public Use
  Company Number: WAES 0401USA00523

PATIENT
  Age: 48 Year
  Sex: Female

DRUGS (3)
  1. ALBUTEROL [Concomitant]
  2. LEVOTHROID [Concomitant]
  3. SINGULAIR [Suspect]
     Route: 048

REACTIONS (1)
  - ASTHMA [None]
